FAERS Safety Report 6399142-3 (Version None)
Quarter: 2009Q4

REPORT INFORMATION
  Report Type: 
  Country: None (occurrence: None)
  Receive Date: 20091008
  Receipt Date: 20091001
  Transmission Date: 20100525
  Serious: Yes (Death)
  Sender: FDA-Public Use
  Company Number: TPA2009A02912

PATIENT
  Age: 61 Year
  Sex: Male

DRUGS (4)
  1. KAPIDEX [Suspect]
     Indication: DRUG USE FOR UNKNOWN INDICATION
     Dosage: 60 MG, PER ORAL
     Route: 048
     Dates: start: 20090624
  2. PLAVIX [Concomitant]
  3. COUMADIN [Concomitant]
  4. ASPIRIN [Concomitant]

REACTIONS (1)
  - DEATH [None]
